FAERS Safety Report 14307093 (Version 1)
Quarter: 2017Q4

REPORT INFORMATION
  Report Type: Spontaneous
  Country: DK (occurrence: DK)
  Receive Date: 20171220
  Receipt Date: 20171220
  Transmission Date: 20180321
  Serious: Yes (Life-Threatening, Hospitalization)
  Sender: FDA-Public Use
  Company Number: DK-CIPLA LTD.-2017DK24684

PATIENT

DRUGS (1)
  1. TOPIRAMATE. [Suspect]
     Active Substance: TOPIRAMATE
     Indication: MOOD SWINGS
     Dosage: 50 MG, PER DAY
     Route: 048
     Dates: start: 20171024, end: 201711

REACTIONS (8)
  - Maculopathy [Recovered/Resolved]
  - Ocular hyperaemia [Recovered/Resolved]
  - Photophobia [Recovered/Resolved]
  - Intraocular pressure increased [Recovered/Resolved]
  - Eye pain [Recovered/Resolved]
  - Acute myopia [Recovered/Resolved]
  - Vision blurred [Recovered/Resolved]
  - Lacrimation increased [Recovered/Resolved]

NARRATIVE: CASE EVENT DATE: 20171102
